FAERS Safety Report 4816365-2 (Version None)
Quarter: 2005Q4

REPORT INFORMATION
  Report Type: 
  Country: None (occurrence: None)
  Receive Date: 20051028
  Receipt Date: 20051020
  Transmission Date: 20060501
  Serious: Yes (Hospitalization)
  Sender: FDA-Public Use
  Company Number: GBWYE591015APR05

PATIENT
  Age: 58 Year
  Sex: Female

DRUGS (1)
  1. SIROLIMUS (SIROLIMUS) [Suspect]
     Indication: RENAL TRANSPLANT
     Dosage: 3 MG 1X PER 1 DAY
     Route: 048
     Dates: start: 20041228, end: 20050413

REACTIONS (1)
  - HEPATIC STEATOSIS [None]
